FAERS Safety Report 23471493 (Version 2)
Quarter: 2024Q1

REPORT INFORMATION
  Report Type: Spontaneous
  Country: US (occurrence: US)
  Receive Date: 20240202
  Receipt Date: 20240319
  Transmission Date: 20240410
  Serious: No
  Sender: FDA-Public Use
  Company Number: US-SA-SAC20240127000161

PATIENT
  Age: 22 Year
  Sex: Male
  Weight: 54.8 kg

DRUGS (24)
  1. LUMIZYME [Suspect]
     Active Substance: ALGLUCOSIDASE ALFA
     Indication: Glycogen storage disease type II
     Dosage: 2100 MG, QW
     Route: 042
     Dates: start: 20221115
  2. EPIPEN [Suspect]
     Active Substance: EPINEPHRINE
     Dosage: UNK
  3. SODIUM CHLORIDE [Concomitant]
     Active Substance: SODIUM CHLORIDE
     Dosage: UNK
  4. STERILE WATER [Concomitant]
     Active Substance: WATER
     Dosage: UNK
  5. COLACE [Concomitant]
     Active Substance: DOCUSATE SODIUM
     Dosage: UNK
  6. FAMOTIDINE [Concomitant]
     Active Substance: FAMOTIDINE
     Dosage: UNK
  7. ZINC [Concomitant]
     Active Substance: PYRITHIONE ZINC\ZINC\ZINC CHLORIDE
     Dosage: UNK
  8. PULMICORT TURBUHALER [Concomitant]
     Active Substance: BUDESONIDE
     Dosage: UNK
  9. TYLENOL EXTRA STRENGTH [Concomitant]
     Active Substance: ACETAMINOPHEN
     Dosage: UNK
  10. HEPARIN [Concomitant]
     Active Substance: HEPARIN SODIUM
     Dosage: UNK
  11. FLONASE ALLERGY RELIEF [Concomitant]
     Active Substance: FLUTICASONE PROPIONATE
     Dosage: UNK
  12. PREVACID [Concomitant]
     Active Substance: LANSOPRAZOLE
     Dosage: UNK
  13. FIBER [Concomitant]
     Dosage: UNK
  14. LIDOCAINE [Concomitant]
     Active Substance: LIDOCAINE
     Dosage: UNK
  15. PRILOCAINE [Concomitant]
     Active Substance: PRILOCAINE
     Dosage: UNK
  16. VITAMIN D3 [Concomitant]
     Active Substance: CHOLECALCIFEROL
     Dosage: UNK
  17. IBU [Concomitant]
     Active Substance: IBUPROFEN
     Dosage: UNK
  18. DIPHENHYDRAMINE HYDROCHLORIDE [Concomitant]
     Active Substance: DIPHENHYDRAMINE HYDROCHLORIDE
     Dosage: UNK
  19. XOPENEX [Concomitant]
     Active Substance: LEVALBUTEROL HYDROCHLORIDE
     Dosage: UNK
  20. LORATADINE [Concomitant]
     Active Substance: LORATADINE
     Dosage: UNK
  21. SODIUM CHLORIDE [Concomitant]
     Active Substance: SODIUM CHLORIDE
     Dosage: UNK
  22. CHOLESTYRAMINE [Concomitant]
     Active Substance: CHOLESTYRAMINE
     Dosage: UNK
  23. PROCELL [Concomitant]
     Dosage: UNK
  24. LIDOCAINE HYDROCHLORIDE [Concomitant]
     Active Substance: LIDOCAINE HYDROCHLORIDE
     Dosage: UNK

REACTIONS (1)
  - Inappropriate schedule of product administration [Unknown]

NARRATIVE: CASE EVENT DATE: 20221115
